FAERS Safety Report 9275756 (Version 2)
Quarter: 2013Q2

REPORT INFORMATION
  Report Type: Spontaneous
  Country: JP (occurrence: JP)
  Receive Date: 20130507
  Receipt Date: 20130528
  Transmission Date: 20140414
  Serious: Yes (Hospitalization)
  Sender: FDA-Public Use
  Company Number: JP-SANOFI-AVENTIS-2013SA043424

PATIENT
  Age: 55 Year
  Sex: Female
  Weight: 43.5 kg

DRUGS (3)
  1. PREDNISOLONE [Suspect]
     Indication: RHEUMATOID ARTHRITIS
     Route: 065
  2. ARAVA [Suspect]
     Indication: RHEUMATOID ARTHRITIS
     Route: 048
     Dates: start: 201101, end: 20120130
  3. RHEUMATREX [Suspect]
     Indication: RHEUMATOID ARTHRITIS
     Dosage: STRENGTH 2 MG
     Route: 048
     Dates: start: 2001, end: 20120130

REACTIONS (18)
  - Necrotising fasciitis [Recovered/Resolved]
  - Pyrexia [Recovered/Resolved]
  - Nausea [Recovered/Resolved]
  - Rash [Recovered/Resolved]
  - Pain of skin [Recovered/Resolved]
  - Feeling hot [Recovered/Resolved]
  - Skin lesion [Recovered/Resolved]
  - C-reactive protein increased [Recovered/Resolved]
  - Excoriation [Recovered/Resolved]
  - Blister [Recovered/Resolved]
  - Streptococcus test positive [Recovered/Resolved]
  - Toxic shock syndrome [Recovering/Resolving]
  - Blood pressure decreased [Recovering/Resolving]
  - Erythema [Recovering/Resolving]
  - Skin necrosis [Recovering/Resolving]
  - White blood cell count increased [Recovering/Resolving]
  - Disseminated intravascular coagulation [Recovering/Resolving]
  - Thrombocytopenia [Recovering/Resolving]
